FAERS Safety Report 5079946-X (Version None)
Quarter: 2006Q3

REPORT INFORMATION
  Report Type: 
  Country: None (occurrence: None)
  Receive Date: 20060809
  Receipt Date: 20060727
  Transmission Date: 20061208
  Serious: Yes (Hospitalization)
  Sender: FDA-Public Use
  Company Number: 2006JP002454

PATIENT
  Age: 55 Year
  Sex: Male

DRUGS (3)
  1. PROGRAF [Suspect]
     Indication: TRANSPLANT
     Dosage: 4 MG, D, ORAL
     Route: 048
     Dates: end: 20060613
  2. EVEROLIMUS(EVEROLIMUS) TABLET [Suspect]
     Dosage: 2 MG, D, ORAL
     Route: 048
     Dates: end: 20050612
  3. PREDNISOLONE [Concomitant]

REACTIONS (5)
  - DRUG TOXICITY [None]
  - HAEMATOTOXICITY [None]
  - HYPERSENSITIVITY [None]
  - INFECTION [None]
  - VASCULITIS [None]
